FAERS Safety Report 4990303-4 (Version None)
Quarter: 2006Q2

REPORT INFORMATION
  Report Type: 
  Country: None (occurrence: None)
  Receive Date: 20060501
  Receipt Date: 20060501
  Transmission Date: 20061013
  Serious: Yes (Life-Threatening, Hospitalization)
  Sender: FDA-Public Use
  Company Number: None

PATIENT
  Age: 55 Year
  Sex: Male
  Weight: 70 kg

DRUGS (1)
  1. LORAZEPAM [Suspect]
     Indication: SEDATION
     Dosage: 1440 MG /DAY 60 MG /HR IV DRIP
     Route: 042
     Dates: start: 20051022, end: 20051024

REACTIONS (2)
  - DRUG TOXICITY [None]
  - RENAL DISORDER [None]
